FAERS Safety Report 7029575-3 (Version None)
Quarter: 2010Q4

REPORT INFORMATION
  Report Type: 
  Country: None (occurrence: None)
  Receive Date: 20101005
  Receipt Date: 20100928
  Transmission Date: 20110411
  Serious: Yes (Hospitalization, Other)
  Sender: FDA-Public Use
  Company Number: US-AMGEN-QUU432922

PATIENT
  Sex: Male
  Weight: 75.4 kg

DRUGS (7)
  1. NPLATE [Suspect]
     Indication: IDIOPATHIC THROMBOCYTOPENIC PURPURA
     Route: 058
     Dates: start: 20090304, end: 20090504
  2. METOPROLOL SUCCINATE [Concomitant]
     Route: 048
  3. PHENERGAN [Concomitant]
     Route: 048
  4. ROSUVASTATIN [Concomitant]
  5. AMBIEN [Concomitant]
     Route: 048
  6. ALLOPURINOL [Concomitant]
     Route: 048
  7. CRESTOR [Concomitant]
     Route: 048

REACTIONS (3)
  - ACUTE MYELOID LEUKAEMIA [None]
  - DRUG INEFFECTIVE [None]
  - PLATELET COUNT DECREASED [None]
